FAERS Safety Report 8806469 (Version 2)
Quarter: 2013Q1

REPORT INFORMATION
  Report Type: Spontaneous
  Country: US (occurrence: None)
  Receive Date: 20120918
  Receipt Date: 20121009
  Transmission Date: 20140127
  Serious: Yes (Other)
  Sender: FDA-Public Use
  Company Number: AUR-APL-2012-03984

PATIENT
  Age: 81 Year
  Sex: Female
  Weight: 53.51 kg

DRUGS (9)
  1. ALPRAZOLAM (ALPRAZOLAM) [Suspect]
     Indication: DEPRESSION
     Route: 048
     Dates: end: 201205
  2. MIRTAZAPINE (MIRTAZAPINE) [Suspect]
     Indication: DEPRESSION
     Dosage: AT NIGHT (7.5 MG, NIGHT), ORAL
     Route: 048
     Dates: start: 201205
  3. XANAX [Suspect]
     Indication: PRODUCT USED FOR UNKNOWN INDICATION
     Dosage: 0.75 MG (0.25 MG,3 IN 1 D)
  4. REMERON [Suspect]
     Indication: PRODUCT USED FOR UNKNOWN INDICATION
  5. LOPRESSOR(METOPROLOL TARTRATE) [Concomitant]
  6. EFFEXOR(VENLAFAXINE) [Concomitant]
  7. PANTOPRAZOLE(PANTOPRAZOLE) [Concomitant]
  8. Z-BEC(Z-BEC  /00502701/) [Concomitant]
  9. DIOVANE(VALSARTAN) [Concomitant]

REACTIONS (4)
  - Urinary tract infection [None]
  - Urinary incontinence [None]
  - Pollakiuria [None]
  - Hypochondriasis [None]
